FAERS Safety Report 11794441 (Version 3)
Quarter: 2015Q4

REPORT INFORMATION
  Report Type: Spontaneous
  Country: JP (occurrence: JP)
  Receive Date: 20151202
  Receipt Date: 20151222
  Transmission Date: 20160305
  Serious: Yes (Hospitalization)
  Sender: FDA-Public Use
  Company Number: JP-009507513-1512JPN000395

PATIENT
  Age: 83 Year
  Sex: Female

DRUGS (16)
  1. DIAZOXIDE CAPSULES 25 MG ^MSD^ [Suspect]
     Active Substance: DIAZOXIDE
     Dosage: 25 MG IN THE MORNING AND 12.5 MG AT NIGHT
     Route: 048
  2. AMLODIN OD [Concomitant]
     Active Substance: AMLODIPINE BESYLATE
     Dosage: 5 MG, QD
     Route: 048
  3. LYRICA [Concomitant]
     Active Substance: PREGABALIN
     Dosage: 75 MG, QD
     Route: 048
  4. TAKEPRON [Concomitant]
     Active Substance: LANSOPRAZOLE
     Dosage: 15 MG, QD
     Route: 048
  5. DIART [Concomitant]
     Active Substance: AZOSEMIDE
     Dosage: 60 MG, QD
     Route: 048
  6. METHYCOBAL [Concomitant]
     Active Substance: METHYLCOBALAMIN
     Dosage: 500 MICROGRAM, BID
     Route: 048
  7. MAGNESIUM OXIDE. [Concomitant]
     Active Substance: MAGNESIUM OXIDE
     Dosage: DAILY DOSE UNKNOWN
     Route: 048
  8. PANTOSIN [Concomitant]
     Active Substance: PANTETHINE
     Dosage: 0.5 DF, BID
     Route: 048
  9. BONALON [Concomitant]
     Active Substance: ALENDRONATE SODIUM
     Dosage: 35 MG, QW
     Route: 048
  10. CALONAL [Concomitant]
     Active Substance: ACETAMINOPHEN
     Dosage: 200 MG, TID
     Route: 065
  11. DEPAS [Concomitant]
     Active Substance: ETIZOLAM
     Dosage: 0.5 MG, BID
     Route: 048
  12. DIOVAN [Concomitant]
     Active Substance: VALSARTAN
     Dosage: 80 MG, QD
     Route: 048
  13. MEXITIL [Concomitant]
     Active Substance: MEXILETINE HYDROCHLORIDE
     Dosage: 50 MG, TID
     Route: 048
  14. GASTROM [Concomitant]
     Active Substance: ECABET
     Dosage: DAILY DOSE UNKNOWN, DOSE DIVIDED INTO 2 TIMES(MORNING AND EVENING)
     Route: 048
  15. ENSURE [Concomitant]
     Active Substance: AMINO ACIDS\DEXTROSE\ELECTROLYTES NOS\SOYBEAN OIL\VITAMINS
     Dosage: DAILY DOSE UNKNOWN, ONE DOSE DIVIDED INTO 2 TIMES(MOMING AND EVENING)
  16. POSTERISAN [Concomitant]
     Active Substance: LIDOCAINE
     Dosage: QD, DAILY DOSE UNKNOWN
     Route: 054

REACTIONS (2)
  - Drug effect incomplete [Recovering/Resolving]
  - Rectal prolapse [Recovering/Resolving]

NARRATIVE: CASE EVENT DATE: 20151110
